FAERS Safety Report 8852823 (Version 1)
Quarter: 2012Q4

REPORT INFORMATION
  Report Type: 
  Country: US (occurrence: US)
  Receive Date: 20121022
  Receipt Date: 20121022
  Transmission Date: 20130627
  Serious: Yes (Hospitalization)
  Sender: FDA-Public Use
  Company Number: US-TEVA-365233USA

PATIENT
  Age: 45 Year
  Sex: Female

DRUGS (4)
  1. OXALIPLATIN [Suspect]
     Indication: COLORECTAL CANCER STAGE III
     Route: 065
  2. FLUOROURACIL [Concomitant]
     Indication: COLORECTAL CANCER STAGE III
     Route: 065
  3. FOLINIC ACID [Concomitant]
     Indication: COLORECTAL CANCER STAGE III
     Route: 065
  4. BEVACIZUMAB [Concomitant]
     Indication: COLORECTAL CANCER STAGE III
     Route: 065

REACTIONS (7)
  - Portal hypertension [Recovered/Resolved]
  - Oesophageal varices haemorrhage [Recovered/Resolved]
  - Liver injury [Not Recovered/Not Resolved]
  - Anaemia [None]
  - Portal hypertensive gastropathy [None]
  - Hepatic necrosis [None]
  - Liver disorder [None]
